FAERS Safety Report 11620427 (Version 1)
Quarter: 2015Q4

REPORT INFORMATION
  Report Type: Spontaneous
  Country: US (occurrence: US)
  Receive Date: 20151012
  Receipt Date: 20151012
  Transmission Date: 20160304
  Serious: Yes (Other)
  Sender: FDA-Public Use
  Company Number: US-PFIZER INC-2015337133

PATIENT
  Sex: Male

DRUGS (1)
  1. LYRICA [Suspect]
     Active Substance: PREGABALIN
     Dosage: AS NEEDED

REACTIONS (4)
  - Dysarthria [Unknown]
  - Amnesia [Unknown]
  - Confusional state [Unknown]
  - Poisoning [Unknown]
